FAERS Safety Report 18937245 (Version 2)
Quarter: 2021Q2

REPORT INFORMATION
  Report Type: Spontaneous
  Country: US (occurrence: US)
  Receive Date: 20210225
  Receipt Date: 20210407
  Transmission Date: 20210717
  Serious: No
  Sender: FDA-Public Use
  Company Number: US-BEH-2021128852

PATIENT
  Age: 51 Year
  Sex: Female

DRUGS (5)
  1. HIZENTRA [Suspect]
     Active Substance: HUMAN IMMUNOGLOBULIN G
     Dosage: 2 GRAM, QW
     Route: 058
     Dates: start: 20210206
  2. HIZENTRA [Suspect]
     Active Substance: HUMAN IMMUNOGLOBULIN G
     Indication: HYPOGAMMAGLOBULINAEMIA
     Dosage: 4 GRAM, QW
     Route: 058
     Dates: start: 20210206
  3. HIZENTRA [Suspect]
     Active Substance: HUMAN IMMUNOGLOBULIN G
     Dosage: 4 GRAM, QW
     Route: 058
     Dates: start: 202102
  4. HIZENTRA [Suspect]
     Active Substance: HUMAN IMMUNOGLOBULIN G
     Dosage: 1 GRAM, QW
     Route: 058
     Dates: start: 202102
  5. HIZENTRA [Suspect]
     Active Substance: HUMAN IMMUNOGLOBULIN G
     Dosage: 2 GRAM, QW
     Route: 058
     Dates: start: 202102

REACTIONS (8)
  - Product dose omission issue [Unknown]
  - Diarrhoea [Unknown]
  - Nausea [Unknown]
  - Arthralgia [Unknown]
  - Incorrect drug administration rate [Unknown]
  - Dizziness [Unknown]
  - Arthralgia [Unknown]
  - No adverse event [Unknown]

NARRATIVE: CASE EVENT DATE: 202102
